FAERS Safety Report 6095025-7 (Version None)
Quarter: 2009Q1

REPORT INFORMATION
  Report Type: 
  Country: None (occurrence: None)
  Receive Date: 20090227
  Receipt Date: 20080407
  Transmission Date: 20090719
  Serious: No
  Sender: FDA-Public Use
  Company Number: A0680156A

PATIENT
  Age: 70 Year
  Sex: Female

DRUGS (5)
  1. LAMICTAL [Suspect]
     Indication: BIPOLAR DISORDER
     Dosage: 400MG PER DAY
     Route: 048
     Dates: start: 20060101
  2. ESTROGENIC SUBSTANCE [Suspect]
  3. XANAX [Concomitant]
  4. BLOOD PRESSURE MEDICATION [Concomitant]
  5. AMBIEN [Concomitant]

REACTIONS (5)
  - ANXIETY [None]
  - DRUG INTERACTION [None]
  - HOT FLUSH [None]
  - INSOMNIA [None]
  - TREMOR [None]
